FAERS Safety Report 20874078 (Version 1)
Quarter: 2022Q2

REPORT INFORMATION
  Report Type: Spontaneous
  Country: IR (occurrence: IR)
  Receive Date: 20220525
  Receipt Date: 20220525
  Transmission Date: 20220720
  Serious: Yes (Death)
  Sender: FDA-Public Use
  Company Number: IR-PFIZER INC-202200368870

PATIENT
  Age: 14 Year
  Sex: Female

DRUGS (2)
  1. VINCRISTINE [Suspect]
     Active Substance: VINCRISTINE
     Indication: Acute lymphocytic leukaemia
     Dosage: 2 MG,  (4TH ROUND OF CHEMOTHERAPHY)
     Route: 042
  2. CORTONE [Suspect]
     Active Substance: CORTISONE ACETATE

REACTIONS (4)
  - Venoocclusive disease [Fatal]
  - Venoocclusive liver disease [Fatal]
  - Infection [Fatal]
  - Haemoglobin decreased [Unknown]
